FAERS Safety Report 20913962 (Version 1)
Quarter: 2022Q2

REPORT INFORMATION
  Report Type: Spontaneous
  Country: US (occurrence: US)
  Receive Date: 20220604
  Receipt Date: 20220604
  Transmission Date: 20220720
  Serious: Yes (Other)
  Sender: FDA-Public Use
  Company Number: US-AMGEN-USASP2022093988

PATIENT
  Age: 64 Year
  Sex: Male
  Weight: 70.4 kg

DRUGS (1)
  1. MVASI [Suspect]
     Active Substance: BEVACIZUMAB-AWWB
     Indication: Colorectal cancer
     Dosage: 360 MILLIGRAM
     Route: 065
     Dates: start: 20220207

REACTIONS (1)
  - Haematochezia [Unknown]
